FAERS Safety Report 8479099-1 (Version None)
Quarter: 2012Q2

REPORT INFORMATION
  Report Type: 
  Country: None (occurrence: None)
  Receive Date: 20120629
  Receipt Date: 20120621
  Transmission Date: 20120825
  Serious: Yes (Other)
  Sender: FDA-Public Use
  Company Number: US-BRISTOL-MYERS SQUIBB COMPANY-16572455

PATIENT
  Age: 64 Year
  Sex: Male

DRUGS (3)
  1. ABILIFY [Suspect]
     Indication: DEPRESSION
     Dosage: NO OF DOSES:4
     Dates: start: 20120304, end: 20120306
  2. CITALOPRAM HYDROBROMIDE [Suspect]
  3. AVAPRO [Suspect]

REACTIONS (4)
  - SPINAL COLUMN STENOSIS [None]
  - MALAISE [None]
  - TREMOR [None]
  - DEPRESSION [None]
